FAERS Safety Report 11062942 (Version 2)
Quarter: 2015Q2

REPORT INFORMATION
  Report Type: Spontaneous
  Country: IT (occurrence: IT)
  Receive Date: 20150424
  Receipt Date: 20150612
  Transmission Date: 20150821
  Serious: Yes (Life-Threatening, Other)
  Sender: FDA-Public Use
  Company Number: IT-GILEAD-2015-0149919

PATIENT
  Age: 48 Year
  Sex: Male
  Weight: 82 kg

DRUGS (5)
  1. REBETOL [Suspect]
     Active Substance: RIBAVIRIN
     Indication: HEPATITIS C
     Dosage: 1200 MG, UNK
     Route: 048
     Dates: start: 20150225
  2. SOVALDI [Suspect]
     Active Substance: SOFOSBUVIR
     Indication: HEPATITIS C
     Dosage: 400 MG, UNK
     Route: 048
     Dates: start: 20150225
  3. CARVEDILOL. [Concomitant]
     Active Substance: CARVEDILOL
     Indication: PORTAL HYPERTENSION
     Dosage: 6250 MG, UNK
     Route: 048
     Dates: start: 20140101
  4. INSULIN [Concomitant]
     Active Substance: INSULIN NOS
     Route: 065
  5. ZANTAC [Concomitant]
     Active Substance: RANITIDINE HYDROCHLORIDE
     Indication: GASTRIC MUCOSAL LESION
     Dosage: 150 MG, UNK
     Route: 048
     Dates: start: 20150225

REACTIONS (3)
  - Gastrointestinal haemorrhage [Recovered/Resolved]
  - Coma hepatic [Recovered/Resolved]
  - Hepatic encephalopathy [Recovered/Resolved]

NARRATIVE: CASE EVENT DATE: 20150409
